FAERS Safety Report 16136635 (Version 1)
Quarter: 2019Q2

REPORT INFORMATION
  Report Type: Spontaneous
  Country: FR (occurrence: FR)
  Receive Date: 20190401
  Receipt Date: 20190401
  Transmission Date: 20190711
  Serious: Yes (Other)
  Sender: FDA-Public Use
  Company Number: FR-TEVA-2019-FR-1030416

PATIENT
  Age: 24 Year
  Sex: Female

DRUGS (3)
  1. ACUPAN [Suspect]
     Active Substance: NEFOPAM HYDROCHLORIDE
     Indication: INTENTIONAL PRODUCT MISUSE
     Route: 042
     Dates: start: 2016, end: 2019
  2. CHLORHYDRATE DE TRAMADOL [Suspect]
     Active Substance: TRAMADOL HYDROCHLORIDE
     Indication: INTENTIONAL PRODUCT MISUSE
     Dosage: 200 MILLIGRAM DAILY;
     Route: 048
  3. ORAMORPH [Suspect]
     Active Substance: MORPHINE SULFATE
     Indication: INTENTIONAL PRODUCT MISUSE
     Route: 065
     Dates: start: 2017, end: 2019

REACTIONS (1)
  - Drug dependence [Recovering/Resolving]

NARRATIVE: CASE EVENT DATE: 2018
